FAERS Safety Report 15888748 (Version 1)
Quarter: 2019Q1

REPORT INFORMATION
  Report Type: Spontaneous
  Country: LK (occurrence: LK)
  Receive Date: 20190130
  Receipt Date: 20190130
  Transmission Date: 20190417
  Serious: Yes (Hospitalization, Other)
  Sender: FDA-Public Use
  Company Number: LK-BAUSCH-BL-2019-002550

PATIENT
  Age: 42 Year
  Sex: Female

DRUGS (1)
  1. PREDNISOLONE. [Suspect]
     Active Substance: PREDNISOLONE
     Indication: CUTANEOUS LUPUS ERYTHEMATOSUS
     Route: 065

REACTIONS (4)
  - Retroperitoneal abscess [Recovered/Resolved]
  - Escherichia infection [Recovered/Resolved]
  - Induration [Recovered/Resolved]
  - Steroid diabetes [Not Recovered/Not Resolved]
